FAERS Safety Report 5421758-9 (Version None)
Quarter: 2007Q3

REPORT INFORMATION
  Report Type: 
  Country: None (occurrence: None)
  Receive Date: 20070820
  Receipt Date: 20070807
  Transmission Date: 20080115
  Serious: Yes (Hospitalization)
  Sender: FDA-Public Use
  Company Number: 2007BI008680

PATIENT
  Age: 55 Year
  Sex: Female

DRUGS (2)
  1. NATALIZUMAB [Suspect]
     Indication: MULTIPLE SCLEROSIS
     Dosage: 300 MG QM IV
     Route: 042
     Dates: start: 20070125
  2. AVONEX [Concomitant]

REACTIONS (5)
  - CELLULITIS [None]
  - CONDITION AGGRAVATED [None]
  - MULTIPLE SCLEROSIS [None]
  - PULMONARY EMBOLISM [None]
  - THROMBOSIS [None]
